FAERS Safety Report 6112961-3 (Version None)
Quarter: 2009Q1

REPORT INFORMATION
  Report Type: 
  Country: None (occurrence: None)
  Receive Date: 20090312
  Receipt Date: 20090303
  Transmission Date: 20090719
  Serious: Yes (Other)
  Sender: FDA-Public Use
  Company Number: B0564077A

PATIENT
  Age: 34 Year
  Sex: Male

DRUGS (1)
  1. NICABATE [Suspect]
     Dosage: 1PAT PER DAY
     Dates: start: 20090101, end: 20090219

REACTIONS (4)
  - DEPRESSION [None]
  - MOOD ALTERED [None]
  - PERSONALITY DISORDER [None]
  - SUICIDAL IDEATION [None]
